FAERS Safety Report 6247943-4 (Version None)
Quarter: 2009Q2

REPORT INFORMATION
  Report Type: 
  Country: None (occurrence: None)
  Receive Date: 20090626
  Receipt Date: 20090612
  Transmission Date: 20091009
  Serious: Yes (Hospitalization)
  Sender: FDA-Public Use
  Company Number: JP-PFIZER INC-2009229490

PATIENT
  Age: 47 Year

DRUGS (4)
  1. MIGLITOL [Suspect]
     Dosage: UNK MG, UNK
     Route: 048
     Dates: start: 20090604, end: 20090612
  2. AMARYL [Concomitant]
     Dosage: 2 DF, UNK
     Route: 048
     Dates: start: 20090602, end: 20090609
  3. NOVORAPID [Concomitant]
     Dosage: UNK
     Route: 058
  4. LANTUS [Concomitant]
     Dosage: UNK
     Route: 058

REACTIONS (3)
  - ALANINE AMINOTRANSFERASE INCREASED [None]
  - ASPARTATE AMINOTRANSFERASE INCREASED [None]
  - HEPATIC FUNCTION ABNORMAL [None]
